FAERS Safety Report 15642080 (Version 1)
Quarter: 2018Q4

REPORT INFORMATION
  Report Type: Spontaneous
  Country: PT (occurrence: PT)
  Receive Date: 20181121
  Receipt Date: 20181121
  Transmission Date: 20190205
  Serious: Yes (Other)
  Sender: FDA-Public Use
  Company Number: PT-CANTON LABORATORIES, LLC-2059138

PATIENT
  Age: 77 Year
  Sex: Female

DRUGS (2)
  1. CONCOR [Concomitant]
     Active Substance: BISOPROLOL FUMARATE
     Route: 048
  2. NAPROSYN [Suspect]
     Active Substance: NAPROXEN
     Indication: EXOSTOSIS
     Route: 048
     Dates: start: 20181019, end: 20181020

REACTIONS (2)
  - Respiratory distress [Recovered/Resolved]
  - Vertigo [Recovered/Resolved]

NARRATIVE: CASE EVENT DATE: 20181020
